FAERS Safety Report 4621508-X (Version None)
Quarter: 2005Q1

REPORT INFORMATION
  Report Type: 
  Country: None (occurrence: None)
  Receive Date: 20050328
  Receipt Date: 20050315
  Transmission Date: 20050727
  Serious: Yes (Hospitalization)
  Sender: FDA-Public Use
  Company Number: HQWYE143415MAR05

PATIENT
  Age: 88 Year
  Sex: Male

DRUGS (9)
  1. CORDARONE [Suspect]
     Indication: TACHYCARDIA
     Dosage: 200 MG 5 TIMES PER WEEK
     Route: 048
     Dates: end: 20050107
  2. CORDIPATCH (GLYCERYL TRINITRATE) [Concomitant]
  3. LASILIX (FUROSEMIDE) [Concomitant]
  4. CORVASAL (MOLSIDOMINE) [Concomitant]
  5. KARDEGIC (ACETYLSALICYLATE LYSINE) [Concomitant]
  6. FOSINOPRIL SODIUM [Concomitant]
  7. AMLOR (AMLODIPINE BESILATE) [Concomitant]
  8. STILNOX (ZOLPIDEM) [Concomitant]
  9. PRAVASTATIN [Concomitant]

REACTIONS (5)
  - CARDIAC FAILURE [None]
  - HYPERTHYROIDISM [None]
  - MYOCARDIAL INFARCTION [None]
  - PNEUMONITIS [None]
  - PULMONARY OEDEMA [None]
